FAERS Safety Report 15408290 (Version 4)
Quarter: 2020Q2

REPORT INFORMATION
  Report Type: Spontaneous
  Country: DE (occurrence: DE)
  Receive Date: 20180920
  Receipt Date: 20200408
  Transmission Date: 20200713
  Serious: Yes (Death, Life-Threatening, Other)
  Sender: FDA-Public Use
  Company Number: DE-EXELIXIS-CABO-18015988

PATIENT
  Age: 23 Year
  Sex: Male

DRUGS (3)
  1. CABOMETYX [Suspect]
     Active Substance: CABOZANTINIB S-MALATE
     Indication: METASTASES TO BONE
  2. ZOLEDRONATE [Suspect]
     Active Substance: ZOLEDRONIC ACID
     Indication: METASTASES TO BONE
     Dosage: 4 MG, UNK
     Route: 042
  3. CABOMETYX [Suspect]
     Active Substance: CABOZANTINIB S-MALATE
     Indication: MEDULLARY THYROID CANCER
     Dosage: UNK

REACTIONS (13)
  - Blood pressure decreased [Unknown]
  - Vomiting [Unknown]
  - Malignant neoplasm progression [Fatal]
  - Hypoproteinaemia [Unknown]
  - Thrombotic microangiopathy [Not Recovered/Not Resolved]
  - Hyperkalaemia [Unknown]
  - Renal failure [Not Recovered/Not Resolved]
  - Microangiopathic haemolytic anaemia [Recovered/Resolved]
  - Thrombocytopenia [Recovered/Resolved]
  - Proteinuria [Unknown]
  - Glomerulonephritis [Unknown]
  - End stage renal disease [Not Recovered/Not Resolved]
  - Blood lactate dehydrogenase increased [Unknown]
